FAERS Safety Report 4843399-4 (Version None)
Quarter: 2005Q4

REPORT INFORMATION
  Report Type: 
  Country: None (occurrence: None)
  Receive Date: 20051201
  Receipt Date: 20051123
  Transmission Date: 20060501
  Serious: Yes (Disabling)
  Sender: FDA-Public Use
  Company Number: US-MERCK-0511USA04256

PATIENT
  Age: 50 Year
  Sex: Male
  Weight: 116 kg

DRUGS (9)
  1. VIOXX [Suspect]
     Indication: ARTHRALGIA
     Route: 048
     Dates: start: 20010401, end: 20040901
  2. VIOXX [Suspect]
     Route: 048
     Dates: start: 20010401, end: 20040901
  3. VITAMINS (UNSPECIFIED) [Concomitant]
     Route: 065
  4. ASCORBIC ACID [Concomitant]
     Route: 065
  5. FLECAINIDE ACETATE [Concomitant]
     Route: 065
  6. LOTREL [Concomitant]
     Route: 065
  7. ATENOLOL [Concomitant]
     Route: 065
  8. HYDROCHLOROTHIAZIDE AND TRIAMTERENE [Concomitant]
     Route: 065
  9. COUMADIN [Concomitant]
     Route: 065

REACTIONS (2)
  - CARPAL TUNNEL SYNDROME [None]
  - CEREBROVASCULAR ACCIDENT [None]
